FAERS Safety Report 6800919-8 (Version None)
Quarter: 2010Q2

REPORT INFORMATION
  Report Type: 
  Country: None (occurrence: None)
  Receive Date: 20100629
  Receipt Date: 20100616
  Transmission Date: 20101027
  Serious: Yes (Hospitalization)
  Sender: FDA-Public Use
  Company Number: PHHY2010TR39373

PATIENT
  Sex: Female
  Weight: 48 kg

DRUGS (4)
  1. CERTICAN [Suspect]
     Indication: TRANSPLANT
     Dosage: 1.5 MG PER DAY
     Route: 048
     Dates: start: 20090603, end: 20090730
  2. CERTICAN [Suspect]
     Indication: IMMUNOSUPPRESSION
  3. DELTACORTRIL [Concomitant]
     Indication: IMMUNOSUPPRESSION
     Dosage: 12.5 MG/DAY
     Dates: start: 20090603
  4. MYCOPHENOLATE MOFETIL [Concomitant]
     Indication: IMMUNOSUPPRESSION
     Dosage: 2000 MG/DAY
     Dates: start: 20090730

REACTIONS (1)
  - INTERSTITIAL LUNG DISEASE [None]
